FAERS Safety Report 12607807 (Version 2)
Quarter: 2016Q3

REPORT INFORMATION
  Report Type: Spontaneous
  Country: FR (occurrence: FR)
  Receive Date: 20160729
  Receipt Date: 20160816
  Transmission Date: 20161109
  Serious: Yes (Hospitalization)
  Sender: FDA-Public Use
  Company Number: FR-JNJFOC-20160717333

PATIENT
  Age: 76 Year
  Sex: Female

DRUGS (18)
  1. RISPERDAL [Suspect]
     Active Substance: RISPERIDONE
     Indication: PRODUCT USED FOR UNKNOWN INDICATION
     Dosage: FROM LONG TIME
     Route: 048
     Dates: end: 20160705
  2. AZITHROMYCIN ANHYDROUS. [Suspect]
     Active Substance: AZITHROMYCIN ANHYDROUS
     Indication: RHEUMATOID ARTHRITIS
     Dosage: 4 TABLETS OF 2.5 MG IN ONE INTAKE; LONG TERM
     Route: 048
     Dates: end: 20160705
  3. ORENCIA [Suspect]
     Active Substance: ABATACEPT
     Indication: RHEUMATOID ARTHRITIS
     Route: 042
     Dates: start: 2014
  4. CORTANCYL [Suspect]
     Active Substance: PREDNISONE
     Indication: PRODUCT USED FOR UNKNOWN INDICATION
     Route: 048
  5. PHOSPHONEUROS [Suspect]
     Active Substance: CALCIUM PHOSPHATE, DIBASIC, ANHYDROUS\MAGNESIUM GLYCEROPHOSPHATE\PHOSPHORIC ACID\SODIUM PHOSPHATE, DIBASIC
     Indication: PRODUCT USED FOR UNKNOWN INDICATION
     Route: 048
     Dates: end: 20160705
  6. ADIAZINE [Suspect]
     Active Substance: SULFADIAZINE
     Indication: PRODUCT USED FOR UNKNOWN INDICATION
     Route: 048
  7. ALPRAZOLAM. [Suspect]
     Active Substance: ALPRAZOLAM
     Indication: ANXIETY
     Route: 048
  8. RAMIPRIL. [Suspect]
     Active Substance: RAMIPRIL
     Indication: PRODUCT USED FOR UNKNOWN INDICATION
     Route: 048
  9. LYRICA [Suspect]
     Active Substance: PREGABALIN
     Indication: ANXIETY
     Route: 048
  10. OXYNORM [Suspect]
     Active Substance: OXYCODONE HYDROCHLORIDE
     Indication: PAIN
     Route: 048
  11. BISOCE [Suspect]
     Active Substance: BISOPROLOL
     Indication: CARDIAC FAILURE
     Route: 048
  12. PYRIMETHAMINE [Suspect]
     Active Substance: PYRIMETHAMINE
     Indication: PRODUCT USED FOR UNKNOWN INDICATION
     Route: 048
     Dates: end: 20160705
  13. PANTOPRAZOLE [Suspect]
     Active Substance: PANTOPRAZOLE SODIUM
     Indication: GASTROOESOPHAGEAL REFLUX DISEASE
     Route: 065
  14. KARDEGIC [Suspect]
     Active Substance: ASPIRIN LYSINE
     Indication: PRODUCT USED FOR UNKNOWN INDICATION
     Route: 048
     Dates: end: 20160705
  15. MIRTAZAPINE. [Suspect]
     Active Substance: MIRTAZAPINE
     Indication: DEPRESSION
     Route: 048
  16. SERTRALINE [Suspect]
     Active Substance: SERTRALINE HYDROCHLORIDE
     Indication: DEPRESSION
     Route: 048
  17. FOLIC ACID. [Suspect]
     Active Substance: FOLIC ACID
     Indication: FOLATE DEFICIENCY
     Dosage: 2 TABLETS OF 5 MG IN ONE INTAKE
     Route: 048
  18. OXYCONTIN [Suspect]
     Active Substance: OXYCODONE HYDROCHLORIDE
     Indication: PAIN
     Route: 048

REACTIONS (2)
  - Bone marrow failure [Recovered/Resolved]
  - Pancytopenia [Recovered/Resolved]

NARRATIVE: CASE EVENT DATE: 201607
